FAERS Safety Report 6819643-0 (Version None)
Quarter: 2010Q3

REPORT INFORMATION
  Report Type: 
  Country: None (occurrence: None)
  Receive Date: 20100707
  Receipt Date: 20100630
  Transmission Date: 20110219
  Serious: Yes (Hospitalization)
  Sender: FDA-Public Use
  Company Number: US-B.I. PHARMACEUTICALS,INC./RIDGEFIELD-2010-BP-07411BP

PATIENT
  Age: 70 Year
  Sex: Female

DRUGS (1)
  1. MIRAPEX [Suspect]
     Indication: RESTLESS LEGS SYNDROME
     Route: 048
     Dates: end: 20100601

REACTIONS (7)
  - ANXIETY [None]
  - ARTERIOSCLEROSIS [None]
  - BLOOD CHOLESTEROL INCREASED [None]
  - DIABETES MELLITUS [None]
  - HALLUCINATION [None]
  - HYPERTENSION [None]
  - SLEEP DISORDER [None]
